FAERS Safety Report 7136031-0 (Version None)
Quarter: 2010Q4

REPORT INFORMATION
  Report Type: 
  Country: None (occurrence: None)
  Receive Date: 20101204
  Receipt Date: 20101014
  Transmission Date: 20110411
  Serious: No
  Sender: FDA-Public Use
  Company Number: US-BAYER-201022560BCC

PATIENT
  Sex: Female
  Weight: 13.636 kg

DRUGS (1)
  1. ASPIRIN [Suspect]
     Dosage: 3 DF, ONCE
     Route: 048

REACTIONS (1)
  - NO ADVERSE EVENT [None]
